FAERS Safety Report 19293198 (Version 1)
Quarter: 2021Q2

REPORT INFORMATION
  Report Type: Spontaneous
  Country: US (occurrence: US)
  Receive Date: 20210523
  Receipt Date: 20210523
  Transmission Date: 20210717
  Serious: Yes (Other)
  Sender: FDA-Public Use
  Company Number: None

PATIENT
  Age: 48 Year
  Sex: Female
  Weight: 141.75 kg

DRUGS (3)
  1. IBUPROPHEN [Concomitant]
     Active Substance: IBUPROFEN
  2. VYVANSE [Suspect]
     Active Substance: LISDEXAMFETAMINE DIMESYLATE
     Indication: BINGE EATING
     Dates: start: 20210228, end: 20210522
  3. AMLODOPINE [Concomitant]
     Active Substance: AMLODIPINE BESYLATE

REACTIONS (4)
  - Dry mouth [None]
  - Cheilitis [None]
  - Stomatitis [None]
  - Glossodynia [None]

NARRATIVE: CASE EVENT DATE: 20210521
